FAERS Safety Report 15683358 (Version 1)
Quarter: 2018Q4

REPORT INFORMATION
  Report Type: Spontaneous
  Country: PL (occurrence: PL)
  Receive Date: 20181204
  Receipt Date: 20181204
  Transmission Date: 20190205
  Serious: Yes (Other)
  Sender: FDA-Public Use
  Company Number: PL-ASTELLAS-2018US051185

PATIENT
  Sex: Female
  Weight: 62 kg

DRUGS (3)
  1. BETMIGA [Suspect]
     Active Substance: MIRABEGRON
     Indication: MICTURITION URGENCY
     Route: 048
  2. BETMIGA [Suspect]
     Active Substance: MIRABEGRON
     Route: 048
  3. VESICARE [Suspect]
     Active Substance: SOLIFENACIN SUCCINATE
     Indication: MICTURITION URGENCY
     Route: 048

REACTIONS (4)
  - Urinary retention [Recovered/Resolved]
  - Inappropriate schedule of product administration [Unknown]
  - Cystitis bacterial [Recovered/Resolved]
  - Visual pathway disorder [Recovered/Resolved]
